FAERS Safety Report 21386412 (Version 2)
Quarter: 2022Q4

REPORT INFORMATION
  Report Type: Spontaneous
  Country: PL (occurrence: PL)
  Receive Date: 20220928
  Receipt Date: 20221010
  Transmission Date: 20230113
  Serious: Yes (Other)
  Sender: FDA-Public Use
  Company Number: PL-CHEPLA-2022007778

PATIENT
  Age: 55 Year
  Sex: Female

DRUGS (16)
  1. FLUCONAZOLE [Suspect]
     Active Substance: FLUCONAZOLE
     Dosage: 1 X 600 MG
  2. METHYLPREDNISOLONE [Suspect]
     Active Substance: METHYLPREDNISOLONE
     Dosage: UNK
  3. TACROLIMUS [Suspect]
     Active Substance: TACROLIMUS
     Dosage: UNK
  4. GANCICLOVIR [Suspect]
     Active Substance: GANCICLOVIR
     Indication: Cytomegalovirus infection
     Dosage: UNK
  5. PREDNISONE [Suspect]
     Active Substance: PREDNISONE
  6. VALGANCICLOVIR [Suspect]
     Active Substance: VALGANCICLOVIR
     Indication: Cytomegalovirus infection
     Dosage: UNK
  7. FONDAPARINUX [Concomitant]
     Active Substance: FONDAPARINUX
     Dosage: UNK
  8. NITROGLYCERIN [Concomitant]
     Active Substance: NITROGLYCERIN
     Dosage: UNK
  9. TERLIPRESSIN [Concomitant]
     Active Substance: TERLIPRESSIN
     Dosage: INCREASED (5.65 MG IN THE FLOW OF 4 ML/H)
     Route: 042
  10. TERLIPRESSIN [Concomitant]
     Active Substance: TERLIPRESSIN
     Dosage: INCREASED AGAIN TO 11.3 MG/24 H
     Route: 042
  11. TERLIPRESSIN [Concomitant]
     Active Substance: TERLIPRESSIN
     Dosage: 2 MG GIVEN BY A CONTINUOUS INTRAVENOUS INFUSION OF 2 ML/H
     Route: 042
  12. ORNITHINE [Concomitant]
     Active Substance: ORNITHINE
     Dosage: UNK
  13. CAPTOPRIL [Concomitant]
     Active Substance: CAPTOPRIL
     Dosage: UNK
     Route: 060
  14. VANCOMYCIN [Concomitant]
     Active Substance: VANCOMYCIN
     Indication: Antibiotic prophylaxis
     Dosage: 2 X 1 G
  15. MEROPENEM [Concomitant]
     Active Substance: MEROPENEM
     Indication: Antibiotic prophylaxis
     Dosage: 3 X 1 G
  16. TAZOBACTAM [Concomitant]
     Active Substance: TAZOBACTAM
     Indication: Antibiotic prophylaxis
     Dosage: 3 X 4.5 G

REACTIONS (1)
  - Oesophageal candidiasis [Unknown]
